FAERS Safety Report 9052711 (Version 1)
Quarter: 2013Q1

REPORT INFORMATION
  Report Type: Spontaneous
  Country: DE (occurrence: DE)
  Receive Date: 20130207
  Receipt Date: 20130207
  Transmission Date: 20140127
  Serious: Yes (Other)
  Sender: FDA-Public Use
  Company Number: DE-ROCHE-1177707

PATIENT
  Age: 66 None
  Sex: Female
  Weight: 61 kg

DRUGS (7)
  1. MABTHERA [Suspect]
     Indication: B-CELL LYMPHOMA
     Route: 065
     Dates: start: 201010, end: 201103
  2. MABTHERA [Suspect]
     Route: 065
     Dates: start: 20110614, end: 20120606
  3. BENDAMUSTINE [Concomitant]
     Indication: B-CELL LYMPHOMA
     Route: 065
     Dates: start: 201010, end: 201103
  4. L-THYROXINE [Concomitant]
     Route: 048
  5. FENISTIL [Concomitant]
     Indication: PREMEDICATION
     Route: 042
     Dates: start: 20110614, end: 20120606
  6. DEXAMETHASONE [Concomitant]
     Indication: PREMEDICATION
     Route: 042
     Dates: start: 20110614, end: 20120606
  7. PARACETAMOL [Concomitant]
     Indication: PREMEDICATION
     Route: 048
     Dates: start: 20110614, end: 20120606

REACTIONS (2)
  - Leukopenia [Not Recovered/Not Resolved]
  - Haematotoxicity [Unknown]
